FAERS Safety Report 8337904-3 (Version None)
Quarter: 2012Q2

REPORT INFORMATION
  Report Type: 
  Country: None (occurrence: None)
  Receive Date: 20120504
  Receipt Date: 20120424
  Transmission Date: 20120825
  Serious: Yes (Other)
  Sender: FDA-Public Use
  Company Number: CA-JNJFOC-20120411054

PATIENT
  Sex: Female
  Weight: 51.71 kg

DRUGS (4)
  1. MICRONOR [Concomitant]
     Dosage: DAILY
     Route: 065
  2. REMICADE [Suspect]
     Indication: CROHN'S DISEASE
     Route: 042
     Dates: start: 20050401
  3. ELAVIL [Concomitant]
     Route: 065
  4. ATIVAN [Concomitant]
     Dosage: PRN
     Route: 065

REACTIONS (1)
  - FISTULA [None]
